FAERS Safety Report 24532661 (Version 1)
Quarter: 2024Q4

REPORT INFORMATION
  Report Type: Spontaneous
  Country: PL (occurrence: PL)
  Receive Date: 20241022
  Receipt Date: 20241022
  Transmission Date: 20250115
  Serious: Yes (Other)
  Sender: RANBAXY
  Company Number: PL-SUN PHARMACEUTICAL INDUSTRIES LTD-2024R1-474406

PATIENT
  Age: 18 Year
  Sex: Female

DRUGS (6)
  1. MELOXICAM [Suspect]
     Active Substance: MELOXICAM
     Indication: Osteomyelitis chronic
     Dosage: 15 MILLIGRAM, OD
     Route: 065
  2. FOLIC ACID [Suspect]
     Active Substance: FOLIC ACID
     Indication: Osteomyelitis chronic
     Dosage: 15 MILLIGRAM, WEEKLY
     Route: 065
  3. METHOTREXATE [Suspect]
     Active Substance: METHOTREXATE
     Indication: Osteomyelitis
     Dosage: 20 MILLIGRAM
     Route: 065
  4. RISEDRONATE SODIUM [Suspect]
     Active Substance: RISEDRONATE SODIUM
     Indication: Osteomyelitis chronic
     Dosage: 35 MILLIGRAM
     Route: 065
  5. SULFASALAZINE [Suspect]
     Active Substance: SULFASALAZINE
     Indication: Osteomyelitis chronic
     Dosage: 500 MILLIGRAM, BID
     Route: 065
  6. VITAMIN D3 [Suspect]
     Active Substance: CHOLECALCIFEROL
     Indication: Osteomyelitis chronic
     Dosage: 2000 INTERNATIONAL UNIT, DAILY
     Route: 065

REACTIONS (1)
  - Arthritis [Unknown]
